FAERS Safety Report 23666724 (Version 1)
Quarter: 2024Q1

REPORT INFORMATION
  Report Type: Spontaneous
  Country: GB (occurrence: GB)
  Receive Date: 20240325
  Receipt Date: 20240325
  Transmission Date: 20240409
  Serious: Yes (Death, Hospitalization)
  Sender: FDA-Public Use
  Company Number: GB-TOLMAR, INC.-24GB047687

PATIENT
  Age: 60 Year
  Sex: Male

DRUGS (5)
  1. ELIGARD [Suspect]
     Active Substance: LEUPROLIDE ACETATE
     Indication: Prostate cancer metastatic
     Dosage: UNK UNK, Q 3 MONTH
  2. ELIGARD [Suspect]
     Active Substance: LEUPROLIDE ACETATE
     Indication: Prostate cancer metastatic
     Dosage: UNK
  3. CARBOPLATIN [Concomitant]
     Active Substance: CARBOPLATIN
     Indication: Prostate cancer metastatic
  4. ETOPOSIDE [Concomitant]
     Active Substance: ETOPOSIDE
     Indication: Prostate cancer metastatic
  5. RADIATION THERAPY [Concomitant]
     Active Substance: RADIATION THERAPY
     Indication: Prostate cancer metastatic

REACTIONS (6)
  - Paraesthesia [Unknown]
  - Lymphadenopathy [Unknown]
  - Hydronephrosis [Unknown]
  - Urosepsis [Unknown]
  - Malignant neoplasm progression [Fatal]
  - Condition aggravated [Unknown]
